FAERS Safety Report 7757273-7 (Version None)
Quarter: 2011Q3

REPORT INFORMATION
  Report Type: 
  Country: None (occurrence: None)
  Receive Date: 20110916
  Receipt Date: 20110908
  Transmission Date: 20111222
  Serious: Yes (Hospitalization)
  Sender: FDA-Public Use
  Company Number: US-BAYER-2011-000956

PATIENT
  Age: 23 Year
  Sex: Female
  Weight: 66.213 kg

DRUGS (10)
  1. MORPHINE [Concomitant]
     Dosage: UNK
     Dates: start: 20090121
  2. DILAUDID [Concomitant]
  3. ZOSYN [Concomitant]
     Dosage: UNK
     Dates: start: 20090126, end: 20090129
  4. FLEXERIL [Concomitant]
     Dosage: 10 MG, TID
     Route: 048
  5. VICODIN [Concomitant]
     Dosage: UNK UNK, QID
     Route: 048
  6. LEVAQUIN [Concomitant]
     Dosage: UNK
     Dates: start: 20090124, end: 20090126
  7. YASMIN [Suspect]
     Route: 048
  8. YASMIN [Suspect]
     Indication: DYSMENORRHOEA
     Dosage: UNK
     Route: 048
     Dates: start: 20080528, end: 20090122
  9. VANCOMYCIN [Concomitant]
     Dosage: UNK
     Dates: start: 20090126, end: 20090129
  10. KEFLEX [Concomitant]
     Dosage: UNK
     Dates: start: 20090129, end: 20090207

REACTIONS (15)
  - PULMONARY EMBOLISM [None]
  - CHEST PAIN [None]
  - DIZZINESS [None]
  - INJURY [None]
  - QUALITY OF LIFE DECREASED [None]
  - ANXIETY [None]
  - TACHYCARDIA [None]
  - PAIN [None]
  - PAIN IN EXTREMITY [None]
  - OEDEMA PERIPHERAL [None]
  - PSYCHIATRIC SYMPTOM [None]
  - DEEP VEIN THROMBOSIS [None]
  - DYSPNOEA [None]
  - EMOTIONAL DISTRESS [None]
  - SKIN DISCOLOURATION [None]
